FAERS Safety Report 12195031 (Version 3)
Quarter: 2016Q2

REPORT INFORMATION
  Report Type: Report from Study
  Country: ZA (occurrence: ZA)
  Receive Date: 20160321
  Receipt Date: 20160523
  Transmission Date: 20160815
  Serious: Yes (Other)
  Sender: FDA-Public Use
  Company Number: ZA-JNJFOC-20160318636

PATIENT
  Age: 36 Year
  Sex: Female
  Weight: 40.5 kg

DRUGS (27)
  1. CO-AMOXICLAVE [Concomitant]
     Active Substance: AMOXICILLIN\CLAVULANATE POTASSIUM
     Route: 065
     Dates: start: 20160128, end: 20160204
  2. PYRAZINAMIDE. [Concomitant]
     Active Substance: PYRAZINAMIDE
     Route: 065
     Dates: start: 20150515, end: 20160204
  3. LANSOPRAZOLE. [Concomitant]
     Active Substance: LANSOPRAZOLE
     Route: 065
     Dates: start: 20160307, end: 20160322
  4. SIRTURO [Suspect]
     Active Substance: BEDAQUILINE FUMARATE
     Indication: PULMONARY TUBERCULOSIS
     Dosage: FOR 3 DAYS.
     Route: 048
     Dates: start: 20160224, end: 20160309
  5. SIRTURO [Suspect]
     Active Substance: BEDAQUILINE FUMARATE
     Indication: PULMONARY TUBERCULOSIS
     Dosage: 3 DAYS
     Route: 048
     Dates: start: 20160407, end: 20160422
  6. CLOFAZIMINE [Concomitant]
     Active Substance: CLOFAZIMINE
     Route: 065
     Dates: start: 20150515, end: 20160204
  7. PRETOMANID [Suspect]
     Active Substance: PRETOMANID
     Indication: PULMONARY TUBERCULOSIS
     Route: 048
     Dates: start: 20160210, end: 20160309
  8. LINEZOLID. [Suspect]
     Active Substance: LINEZOLID
     Indication: PULMONARY TUBERCULOSIS
     Dosage: 7 DAYS
     Route: 048
     Dates: start: 20160317, end: 20160324
  9. SALBUTAMOL [Concomitant]
     Active Substance: ALBUTEROL
     Route: 065
     Dates: start: 20151207, end: 20160314
  10. TERIZIDONE [Concomitant]
     Active Substance: TERIZIDONE
     Route: 065
     Dates: start: 20150515, end: 20160204
  11. PARA-AMINOSALICYLIC ACID [Concomitant]
     Active Substance: AMINOSALICYLIC ACID
     Route: 065
     Dates: start: 20150515, end: 20160128
  12. SIRTURO [Suspect]
     Active Substance: BEDAQUILINE FUMARATE
     Indication: PULMONARY TUBERCULOSIS
     Dosage: 3 DAYS
     Route: 048
     Dates: start: 20160317, end: 20160324
  13. ISONIAZID. [Concomitant]
     Active Substance: ISONIAZID
     Route: 065
     Dates: start: 20150515, end: 20160204
  14. SIRTURO [Suspect]
     Active Substance: BEDAQUILINE FUMARATE
     Indication: PULMONARY TUBERCULOSIS
     Route: 048
     Dates: start: 20160210, end: 20160223
  15. PRETOMANID [Suspect]
     Active Substance: PRETOMANID
     Indication: PULMONARY TUBERCULOSIS
     Dosage: 7 DAYS
     Route: 048
     Dates: start: 20160317, end: 20160324
  16. LINEZOLID. [Suspect]
     Active Substance: LINEZOLID
     Indication: PULMONARY TUBERCULOSIS
     Route: 048
     Dates: start: 20160210, end: 20160309
  17. PANADO [Concomitant]
     Active Substance: ACETAMINOPHEN
     Route: 065
     Dates: start: 20160210, end: 20160311
  18. CYCLIZINE [Concomitant]
     Active Substance: CYCLIZINE
     Route: 065
     Dates: start: 20160307, end: 20160310
  19. LINEZOLID. [Suspect]
     Active Substance: LINEZOLID
     Indication: PULMONARY TUBERCULOSIS
     Dosage: 7 DAYS
     Route: 048
     Dates: start: 20160407, end: 20160422
  20. PYRIDOXINE [Concomitant]
     Active Substance: PYRIDOXINE
     Route: 065
     Dates: start: 20150515
  21. MOXIFLOXACIN. [Concomitant]
     Active Substance: MOXIFLOXACIN
     Route: 065
     Dates: start: 20150515, end: 20160204
  22. IBUPROFEN. [Concomitant]
     Active Substance: IBUPROFEN
     Route: 065
     Dates: start: 20160210, end: 20160216
  23. PRETOMANID [Suspect]
     Active Substance: PRETOMANID
     Indication: PULMONARY TUBERCULOSIS
     Dosage: 7 DAYS
     Route: 048
     Dates: start: 20160407, end: 20160422
  24. ETHAMBUTOL [Concomitant]
     Active Substance: ETHAMBUTOL HYDROCHLORIDE
     Route: 065
     Dates: start: 20150515, end: 20160204
  25. MAGNESIUM TRISILICATE [Concomitant]
     Active Substance: MAGNESIUM TRISILICATE
     Route: 065
     Dates: start: 20160116
  26. MYDRIACYL [Concomitant]
     Active Substance: TROPICAMIDE
     Route: 065
     Dates: start: 20160208, end: 20160208
  27. ALLERGEX [Concomitant]
     Route: 065
     Dates: start: 201505, end: 20160307

REACTIONS (1)
  - Abdominal pain upper [Recovered/Resolved]

NARRATIVE: CASE EVENT DATE: 20160309
